FAERS Safety Report 20811071 (Version 9)
Quarter: 2025Q2

REPORT INFORMATION
  Report Type: Spontaneous
  Country: US (occurrence: US)
  Receive Date: 20220510
  Receipt Date: 20250425
  Transmission Date: 20250717
  Serious: Yes (Other)
  Sender: PFIZER
  Company Number: US-PFIZER INC-202101790526

PATIENT
  Age: 71 Year
  Sex: Male

DRUGS (1)
  1. XELJANZ XR [Suspect]
     Active Substance: TOFACITINIB CITRATE
     Dosage: 11 MG, 1X/DAY (IN THE MORNING)
     Route: 048

REACTIONS (5)
  - Blood cholesterol increased [Unknown]
  - Arteriosclerosis coronary artery [Unknown]
  - Liver function test increased [Unknown]
  - Infection [Recovered/Resolved]
  - Hypoacusis [Unknown]
